FAERS Safety Report 24597875 (Version 3)
Quarter: 2025Q2

REPORT INFORMATION
  Report Type: Spontaneous
  Country: US (occurrence: US)
  Receive Date: 20241110
  Receipt Date: 20250624
  Transmission Date: 20250716
  Serious: No
  Sender: SANOFI AVENTIS
  Company Number: US-SA-2024SA308996

PATIENT
  Age: 16 Year
  Sex: Male
  Weight: 83 kg

DRUGS (5)
  1. DUPIXENT [Suspect]
     Active Substance: DUPILUMAB
     Indication: Dermatitis atopic
     Dosage: 300 MG, QOW
     Route: 058
     Dates: start: 202407, end: 2025
  2. IBUPROFEN [Concomitant]
     Active Substance: IBUPROFEN
  3. TYLENOL [Concomitant]
     Active Substance: ACETAMINOPHEN
  4. AMOXICILLIN [Concomitant]
     Active Substance: AMOXICILLIN
  5. ALLEGRA ALLERGY [Concomitant]
     Active Substance: FEXOFENADINE HYDROCHLORIDE

REACTIONS (8)
  - Staphylococcal skin infection [Unknown]
  - Limb injury [Unknown]
  - Injection site pain [Unknown]
  - Rebound atopic dermatitis [Unknown]
  - Product dose omission issue [Unknown]
  - Rebound eczema [Unknown]
  - Rash pustular [Unknown]
  - Sinus operation [Unknown]

NARRATIVE: CASE EVENT DATE: 20240101
